FAERS Safety Report 8054385-8 (Version None)
Quarter: 2012Q1

REPORT INFORMATION
  Report Type: 
  Country: None (occurrence: None)
  Receive Date: 20120118
  Receipt Date: 20120117
  Transmission Date: 20120608
  Serious: Yes (Hospitalization)
  Sender: FDA-Public Use
  Company Number: PHHO2011FR07697

PATIENT
  Sex: Female
  Weight: 53 kg

DRUGS (8)
  1. MYOLASTAN [Concomitant]
     Dosage: 50 MG, UNK
     Route: 049
     Dates: start: 20110405, end: 20110429
  2. IMATINIB MESYLATE [Suspect]
     Indication: ACUTE LYMPHOCYTIC LEUKAEMIA
     Dosage: 400 MG, BID
     Route: 048
     Dates: start: 20110413
  3. BACTRIM [Concomitant]
     Dosage: 1400 MG, QW
     Dates: start: 20110307
  4. GRANOCYTE [Concomitant]
     Dosage: 34 UI, UNK
     Route: 058
     Dates: start: 20110421, end: 20110428
  5. METHOTREXATE [Concomitant]
     Dosage: 1500 MG, QD
     Route: 042
     Dates: start: 20110413, end: 20110413
  6. CYTARABINE [Concomitant]
     Dosage: 4700 MG, BID
     Route: 042
     Dates: start: 20110414, end: 20110415
  7. LUTENYL [Concomitant]
     Dosage: 3 MG, UNK
     Route: 048
     Dates: start: 20110305, end: 20110522
  8. VALACYCLOVIR HYDROCHLORIDE [Concomitant]
     Dosage: 1500 MG, UNK
     Route: 048
     Dates: start: 20110307

REACTIONS (2)
  - BRONCHOPULMONARY ASPERGILLOSIS [None]
  - PNEUMONIA [None]
